FAERS Safety Report 21292586 (Version 2)
Quarter: 2022Q3

REPORT INFORMATION
  Report Type: Spontaneous
  Country: BR (occurrence: BR)
  Receive Date: 20220905
  Receipt Date: 20220926
  Transmission Date: 20221027
  Serious: No
  Sender: FDA-Public Use
  Company Number: BR-BoehringerIngelheim-2022-BI-190354

PATIENT
  Sex: Female
  Weight: 60 kg

DRUGS (2)
  1. SPIRIVA RESPIMAT [Suspect]
     Active Substance: TIOTROPIUM BROMIDE
     Indication: Asthma
     Route: 055
  2. Alenia [Concomitant]
     Indication: Asthma

REACTIONS (1)
  - Off label use [Not Recovered/Not Resolved]
